FAERS Safety Report 7444621-0 (Version None)
Quarter: 2011Q2

REPORT INFORMATION
  Report Type: 
  Country: None (occurrence: None)
  Receive Date: 20110429
  Receipt Date: 20110426
  Transmission Date: 20111010
  Serious: Yes (Other)
  Sender: FDA-Public Use
  Company Number: US-PFIZER INC-2011090002

PATIENT
  Sex: Female
  Weight: 99.773 kg

DRUGS (15)
  1. PREMARIN [Concomitant]
     Dosage: UNK
  2. ZANAFLEX [Concomitant]
     Dosage: UNK
  3. NEURONTIN [Suspect]
     Indication: FIBROMYALGIA
     Dosage: 100 MG, 1X/DAY
     Route: 048
     Dates: start: 20101201, end: 20101201
  4. ALLEGRA [Concomitant]
     Dosage: UNK
  5. PROZAC [Concomitant]
     Dosage: UNK
  6. SYNTHROID [Concomitant]
     Indication: HYPOTHYROIDISM
     Dosage: UNK
  7. PEPCID [Concomitant]
     Dosage: UNK
  8. PHENAZOPYRIDINE HCL TAB [Concomitant]
     Dosage: UNK
  9. LOPRESSOR [Concomitant]
     Dosage: UNK
  10. ADVIL [Concomitant]
     Dosage: UNK
  11. ZOFRAN [Concomitant]
     Dosage: UNK
  12. ULTRAM [Concomitant]
     Dosage: UNK
  13. THIAMINE [Concomitant]
     Dosage: UNK
  14. VALIUM [Concomitant]
     Dosage: UNK
  15. AMBIEN [Concomitant]
     Dosage: UNK

REACTIONS (3)
  - GASTRITIS [None]
  - GASTRIC ULCER [None]
  - NAUSEA [None]
